FAERS Safety Report 22106338 (Version 2)
Quarter: 2023Q2

REPORT INFORMATION
  Report Type: Report from Study
  Country: US (occurrence: US)
  Receive Date: 20230317
  Receipt Date: 20230421
  Transmission Date: 20230722
  Serious: No
  Sender: FDA-Public Use
  Company Number: US-SA-SAC20230310000499

PATIENT
  Age: 19 Year
  Sex: Female

DRUGS (1)
  1. DUPILUMAB [Suspect]
     Active Substance: DUPILUMAB
     Indication: Dermatitis atopic
     Dosage: 300 MG, QOW
     Route: 058
     Dates: start: 20210419, end: 202301

REACTIONS (3)
  - Skin swelling [Unknown]
  - Lung disorder [Unknown]
  - Asthma [Unknown]

NARRATIVE: CASE EVENT DATE: 20230101
